APPROVED DRUG PRODUCT: LORAZEPAM
Active Ingredient: LORAZEPAM
Strength: 4MG/ML
Dosage Form/Route: INJECTABLE;INJECTION
Application: A074280 | Product #002
Applicant: HOSPIRA INC
Approved: May 27, 1994 | RLD: No | RS: No | Type: DISCN